FAERS Safety Report 6251835-4 (Version None)
Quarter: 2009Q2

REPORT INFORMATION
  Report Type: 
  Country: None (occurrence: None)
  Receive Date: 20090630
  Receipt Date: 20090618
  Transmission Date: 20091009
  Serious: Yes (Hospitalization, Other)
  Sender: FDA-Public Use
  Company Number: US-PFIZER INC-2009224166

PATIENT
  Sex: Male

DRUGS (8)
  1. ZOLOFT [Suspect]
     Indication: DEPRESSION
     Dosage: UNK
  2. XANAX [Suspect]
     Dosage: UNK
  3. REBIF [Suspect]
     Dosage: 44 MCG 3 IN 1 WEEK
     Route: 058
     Dates: start: 20081001, end: 20090528
  4. REMERON [Suspect]
     Indication: DEPRESSION
     Dosage: UNK
     Dates: end: 20090101
  5. MOTRIN [Suspect]
     Dosage: UNK
  6. KLONOPIN [Suspect]
     Indication: DEPRESSION
     Dosage: UNK
  7. CELEXA [Concomitant]
     Indication: DEPRESSION
  8. SEROQUEL [Concomitant]
     Indication: DEPRESSION

REACTIONS (13)
  - ALCOHOL USE [None]
  - ANXIETY [None]
  - CONDITION AGGRAVATED [None]
  - DEPRESSION [None]
  - DISEASE PROGRESSION [None]
  - HEMIPARESIS [None]
  - HYPOAESTHESIA [None]
  - INSOMNIA [None]
  - INTENTIONAL OVERDOSE [None]
  - INTENTIONAL SELF-INJURY [None]
  - MULTIPLE DRUG OVERDOSE INTENTIONAL [None]
  - SKIN LACERATION [None]
  - SUICIDE ATTEMPT [None]
